FAERS Safety Report 6328378-2 (Version None)
Quarter: 2009Q3

REPORT INFORMATION
  Report Type: 
  Country: None (occurrence: None)
  Receive Date: 20090825
  Receipt Date: 20090331
  Transmission Date: 20100115
  Serious: No
  Sender: FDA-Public Use
  Company Number: US-ABBOTT-09P-163-0565707-00

PATIENT
  Sex: Female
  Weight: 99.88 kg

DRUGS (3)
  1. SYNTHROID [Suspect]
     Indication: THYROID NEOPLASM
     Dates: start: 20090328
  2. SYNTHROID [Suspect]
     Indication: GOITRE
  3. TOPAMAX [Concomitant]
     Indication: CONVULSION

REACTIONS (3)
  - ABNORMAL DREAMS [None]
  - INSOMNIA [None]
  - THIRST [None]
